FAERS Safety Report 25052311 (Version 1)
Quarter: 2025Q1

REPORT INFORMATION
  Report Type: Spontaneous
  Country: CA (occurrence: CA)
  Receive Date: 20250307
  Receipt Date: 20250307
  Transmission Date: 20250408
  Serious: Yes (Other)
  Sender: PFIZER
  Company Number: CA-PFIZER INC-202500047758

PATIENT
  Age: 2 Year
  Sex: Female

DRUGS (2)
  1. SOMATROPIN [Suspect]
     Active Substance: SOMATROPIN
     Indication: Prader-Willi syndrome
     Dosage: 450 UG, 1X/DAY
     Route: 058
     Dates: start: 2024
  2. SOMATROPIN [Suspect]
     Active Substance: SOMATROPIN
     Dosage: 550 UG, 1X/DAY
     Route: 058

REACTIONS (2)
  - Neutropenia [Not Recovered/Not Resolved]
  - Influenza [Unknown]

NARRATIVE: CASE EVENT DATE: 20241201
